FAERS Safety Report 16373269 (Version 17)
Quarter: 2021Q4

REPORT INFORMATION
  Report Type: Report from Study
  Country: FR (occurrence: FR)
  Receive Date: 20190530
  Receipt Date: 20211110
  Transmission Date: 20220303
  Serious: Yes (Hospitalization, Other)
  Sender: FDA-Public Use
  Company Number: PHHY2019FR124953

PATIENT
  Age: 24 Year
  Sex: Male
  Weight: 82 kg

DRUGS (17)
  1. TACROLIMUS [Suspect]
     Active Substance: TACROLIMUS
     Indication: Renal transplant
     Dosage: 10 MG, UNK
     Route: 048
     Dates: start: 20190220, end: 20190223
  2. TACROLIMUS [Suspect]
     Active Substance: TACROLIMUS
     Dosage: 12 MG, UNK
     Route: 048
     Dates: start: 20190223, end: 20190225
  3. TACROLIMUS [Suspect]
     Active Substance: TACROLIMUS
     Dosage: 14 MG, UNK
     Route: 048
     Dates: start: 20190225, end: 20190226
  4. TACROLIMUS [Suspect]
     Active Substance: TACROLIMUS
     Dosage: 16 MG, UNK
     Route: 048
     Dates: start: 20190226, end: 20190227
  5. TACROLIMUS [Suspect]
     Active Substance: TACROLIMUS
     Dosage: 13 MG, UNK
     Route: 048
     Dates: start: 20190227
  6. TACROLIMUS [Suspect]
     Active Substance: TACROLIMUS
     Dosage: 14 MG, UNK
     Route: 048
     Dates: start: 20190306, end: 20190327
  7. TACROLIMUS [Suspect]
     Active Substance: TACROLIMUS
     Dosage: 15 MG, UNK
     Route: 048
     Dates: start: 20190327, end: 20190402
  8. TACROLIMUS [Suspect]
     Active Substance: TACROLIMUS
     Dosage: 16 MG, UNK
     Route: 048
     Dates: start: 20190402, end: 20190416
  9. TACROLIMUS [Suspect]
     Active Substance: TACROLIMUS
     Dosage: 18 MG, UNK
     Route: 048
     Dates: start: 20190416, end: 20190507
  10. TACROLIMUS [Suspect]
     Active Substance: TACROLIMUS
     Dosage: 20 MG, UNK
     Route: 048
     Dates: start: 20190507
  11. MYFORTIC [Suspect]
     Active Substance: MYCOPHENOLATE SODIUM
     Indication: Prophylaxis against transplant rejection
     Dosage: 1440 MG, UNK
     Route: 065
     Dates: start: 20190221
  12. VALGANCICLOVIR HYDROCHLORIDE [Concomitant]
     Active Substance: VALGANCICLOVIR HYDROCHLORIDE
     Indication: Product used for unknown indication
     Dosage: UNK
     Route: 065
     Dates: start: 20190222
  13. BACTRIM [Concomitant]
     Active Substance: SULFAMETHOXAZOLE\TRIMETHOPRIM
     Indication: Product used for unknown indication
     Dosage: UNK
     Route: 065
     Dates: start: 20190222
  14. AMLODIPINE BESYLATE [Concomitant]
     Active Substance: AMLODIPINE BESYLATE
     Indication: Product used for unknown indication
     Dosage: UNK
     Route: 065
     Dates: start: 20190222
  15. LANSOPRAZOLE [Concomitant]
     Active Substance: LANSOPRAZOLE
     Indication: Product used for unknown indication
     Dosage: UNK
     Route: 065
     Dates: start: 20190222
  16. MOVICOL [Concomitant]
     Active Substance: POLYETHYLENE GLYCOL 3350\POTASSIUM CHLORIDE\SODIUM BICARBONATE\SODIUM CHLORIDE
     Indication: Product used for unknown indication
     Dosage: UNK
     Route: 065
     Dates: start: 20190225
  17. PREDNISONE [Concomitant]
     Active Substance: PREDNISONE
     Indication: Prophylaxis
     Dosage: 10 MG, UNKNOWN
     Route: 065
     Dates: start: 20200221

REACTIONS (4)
  - Ketoacidosis [Recovered/Resolved]
  - Pancytopenia [Recovering/Resolving]
  - Diabetes mellitus [Not Recovered/Not Resolved]
  - Lymphocele [Recovered/Resolved]

NARRATIVE: CASE EVENT DATE: 20190507
